FAERS Safety Report 24397899 (Version 1)
Quarter: 2024Q4

REPORT INFORMATION
  Report Type: Spontaneous
  Country: US (occurrence: US)
  Receive Date: 20241004
  Receipt Date: 20241004
  Transmission Date: 20250114
  Serious: Yes (Hospitalization, Other)
  Sender: PFIZER
  Company Number: US-PFIZER INC-202400268310

PATIENT
  Age: 30 Year
  Sex: Female
  Weight: 48.53 kg

DRUGS (14)
  1. DOXYCYCLINE HYCLATE [Suspect]
     Active Substance: DOXYCYCLINE HYCLATE
     Indication: Pneumonia
     Dosage: UNK
  2. DOXYCYCLINE HYCLATE [Suspect]
     Active Substance: DOXYCYCLINE HYCLATE
     Indication: Arthropod bite
     Dosage: 100 MG; TOOK ONE CAPSULE BY MOUTH TWICE PER DAY
     Route: 048
     Dates: start: 20240917, end: 20240925
  3. GABAPENTIN [Concomitant]
     Active Substance: GABAPENTIN
     Indication: Neuropathy peripheral
     Dosage: 1200 MG AND TAKES ONCE AT NIGHT
     Dates: start: 2014
  4. FAMOTIDINE [Concomitant]
     Active Substance: FAMOTIDINE
     Indication: Reflux gastritis
     Dosage: 40 MG AND TAKES IT TWICE A DAY
  5. FLUOXETINE [Concomitant]
     Active Substance: FLUOXETINE HYDROCHLORIDE
     Indication: Depression
     Dosage: 200 MG ONCE PER DAY
  6. OLANZAPINE [Concomitant]
     Active Substance: OLANZAPINE
     Indication: Anxiety
     Dosage: 2.5 MG AND TAKES IT ONCE A DAY
     Dates: start: 202408
  7. ADDERALL [Concomitant]
     Active Substance: AMPHETAMINE ASPARTATE\AMPHETAMINE SULFATE\DEXTROAMPHETAMINE SACCHARATE\DEXTROAMPHETAMINE SULFATE
     Indication: Attention deficit hyperactivity disorder
     Dosage: 20 MG ONCE PER DAY AND ONCE AS NEEDED
     Dates: start: 2019
  8. TRAZODONE [Concomitant]
     Active Substance: TRAZODONE HYDROCHLORIDE
     Indication: Insomnia
     Dosage: 25 MG ONCE PER DAY
     Dates: start: 2021
  9. PROMETHAZINE [Concomitant]
     Active Substance: PROMETHAZINE HYDROCHLORIDE
     Indication: Nausea
     Dosage: 50 MG, AS NEEDED
     Dates: start: 2014
  10. ZOFRAN [Concomitant]
     Active Substance: ONDANSETRON HYDROCHLORIDE
     Indication: Nausea
     Dosage: 8 MG, AS NEEDED
     Route: 042
     Dates: start: 2009
  11. ZOFRAN [Concomitant]
     Active Substance: ONDANSETRON HYDROCHLORIDE
     Dosage: 8 MG, AS NEEDED
     Route: 048
     Dates: start: 2009
  12. LORAZEPAM [Concomitant]
     Active Substance: LORAZEPAM
     Indication: Anxiety
     Dosage: 2 MG AS NEEDED
     Dates: start: 2009
  13. PROPRANOLOL HYDROCHLORIDE [Concomitant]
     Active Substance: PROPRANOLOL HYDROCHLORIDE
     Indication: Tachycardia
     Dosage: 20 MG AND TAKES IT TWICE A DAY
     Dates: start: 2023
  14. GAMUNEX [Concomitant]
     Active Substance: HUMAN IMMUNOGLOBULIN G
     Indication: Autonomic neuropathy
     Dosage: 50 G, CYCLIC (50 GRAMS EVERY 21 DAYS)
     Dates: start: 2011

REACTIONS (1)
  - Pancreatitis [Recovering/Resolving]
